FAERS Safety Report 25333687 (Version 3)
Quarter: 2025Q4

REPORT INFORMATION
  Report Type: Report from Study
  Country: US (occurrence: US)
  Receive Date: 20250520
  Receipt Date: 20251021
  Transmission Date: 20260118
  Serious: No
  Sender: DAIICHI
  Company Number: US-DAIICHI SANKYO, INC.-DS-2025-141390-USAA

PATIENT
  Age: 73 Year
  Sex: Female

DRUGS (3)
  1. ENHERTU [Suspect]
     Active Substance: FAM-TRASTUZUMAB DERUXTECAN-NXKI
     Indication: Endometrial cancer
     Dosage: 5.4 MG/KG
     Route: 042
     Dates: start: 202401, end: 20250915
  2. ENHERTU [Suspect]
     Active Substance: FAM-TRASTUZUMAB DERUXTECAN-NXKI
     Dosage: 4.4 MG/KG (ABOUT 300MG)
     Route: 065
  3. OXYBUTYNIN [Concomitant]
     Active Substance: OXYBUTYNIN
     Indication: Product used for unknown indication
     Dosage: UNK, AS NEEDED
     Route: 065

REACTIONS (9)
  - Euphoric mood [Unknown]
  - Therapeutic response unexpected [Unknown]
  - Feeling abnormal [Unknown]
  - Restless legs syndrome [Unknown]
  - Hepatic enzyme increased [Unknown]
  - Fatigue [Recovering/Resolving]
  - Off label use [Not Recovered/Not Resolved]
  - Fatigue [Recovering/Resolving]
  - Disease progression [Unknown]

NARRATIVE: CASE EVENT DATE: 20240101
